FAERS Safety Report 5388804-2 (Version None)
Quarter: 2007Q3

REPORT INFORMATION
  Report Type: 
  Country: None (occurrence: None)
  Receive Date: 20070712
  Receipt Date: 20070629
  Transmission Date: 20080115
  Serious: Yes (Death, Hospitalization)
  Sender: FDA-Public Use
  Company Number: M-07-0511

PATIENT
  Age: 72 Year
  Sex: Female

DRUGS (17)
  1. PACERONE [Suspect]
  2. AVANDIA [Suspect]
     Indication: TYPE 2 DIABETES MELLITUS
     Dosage: 2 MG, BID, PO
     Route: 048
  3. GLIPIZIDE [Concomitant]
  4. AVAPRO [Concomitant]
  5. ATENOLOL [Concomitant]
  6. NORVASC [Concomitant]
  7. SYNTHROID [Concomitant]
  8. TRICO [Concomitant]
  9. ULTRACET [Concomitant]
  10. NEURONTIN [Concomitant]
  11. AMITRIPTYLINE HCL [Concomitant]
  12. HYDROCHLOROTHIAZIDE [Concomitant]
  13. ASPIRIN [Concomitant]
  14. CRANBERRY TABLET [Concomitant]
  15. STRESSTABS 600 [Concomitant]
  16. XALATAN [Concomitant]
  17. TIMOPTIC [Concomitant]

REACTIONS (3)
  - ATRIAL FIBRILLATION [None]
  - PULMONARY FIBROSIS [None]
  - PULMONARY OEDEMA [None]
